FAERS Safety Report 20699767 (Version 2)
Quarter: 2022Q2

REPORT INFORMATION
  Report Type: Spontaneous
  Country: US (occurrence: None)
  Receive Date: 20220412
  Receipt Date: 20220503
  Transmission Date: 20220721
  Serious: No
  Sender: FDA-Public Use
  Company Number: 2022A132518

PATIENT
  Sex: Female

DRUGS (1)
  1. BUDESONIDE\FORMOTEROL\GLYCOPYRRONIUM [Suspect]
     Active Substance: BUDESONIDE\FORMOTEROL\GLYCOPYRRONIUM
     Dosage: 160/7.2/5.0?G, 2 PUFFS TWICE EACH DAY
     Route: 055

REACTIONS (3)
  - Glaucoma [Not Recovered/Not Resolved]
  - Wrong technique in device usage process [Unknown]
  - Product delivery mechanism issue [Unknown]
